FAERS Safety Report 19472962 (Version 1)
Quarter: 2021Q2

REPORT INFORMATION
  Report Type: Spontaneous
  Country: US (occurrence: US)
  Receive Date: 20210629
  Receipt Date: 20210629
  Transmission Date: 20210717
  Serious: No
  Sender: FDA-Public Use
  Company Number: US-IGSA-BIG0014965

PATIENT
  Age: 91 Year
  Sex: Female
  Weight: 56.24 kg

DRUGS (2)
  1. GAMUNEX?C [Suspect]
     Active Substance: HUMAN IMMUNOGLOBULIN G
     Dosage: 20 GRAM, Q.4WK.
     Dates: start: 20210616
  2. GAMUNEX?C [Suspect]
     Active Substance: HUMAN IMMUNOGLOBULIN G
     Indication: MYASTHENIA GRAVIS
     Dosage: 10 GRAM, Q.4WK.
     Route: 042
     Dates: start: 20210616

REACTIONS (3)
  - Pruritus [Unknown]
  - Infusion site rash [Unknown]
  - Rash [Unknown]

NARRATIVE: CASE EVENT DATE: 20210616
